FAERS Safety Report 5323176-0 (Version None)
Quarter: 2007Q2

REPORT INFORMATION
  Report Type: 
  Country: None (occurrence: None)
  Receive Date: 20070220
  Receipt Date: 20061116
  Transmission Date: 20071010
  Serious: No
  Sender: FDA-Public Use
  Company Number: WAES 0611USA05067

PATIENT
  Age: 61 Year
  Sex: Female

DRUGS (7)
  1. JANUVIA [Suspect]
     Indication: DIABETES MELLITUS
     Dosage: 100 MG/DAILY/PO
     Route: 048
     Dates: start: 20061102
  2. SYNTHROID [Concomitant]
  3. TRICOR [Concomitant]
  4. UROCIT-K [Concomitant]
  5. ZETIA [Concomitant]
  6. CLONAZEPAM [Concomitant]
  7. METFORMIN HCL [Concomitant]

REACTIONS (3)
  - ASTHENIA [None]
  - DYSPNOEA [None]
  - RHINORRHOEA [None]
